FAERS Safety Report 8268333-9 (Version None)
Quarter: 2012Q2

REPORT INFORMATION
  Report Type: 
  Country: None (occurrence: None)
  Receive Date: 20120404
  Receipt Date: 20120329
  Transmission Date: 20120825
  Serious: Yes (Death, Life-Threatening, Hospitalization)
  Sender: FDA-Public Use
  Company Number: 2012SP014867

PATIENT
  Age: 59 Year
  Sex: Male

DRUGS (8)
  1. VICTRELIS [Suspect]
     Indication: HEPATITIS C
     Dosage: 800 MG, Q8H, PO
     Route: 048
     Dates: start: 20111205, end: 20120313
  2. RIBAVIRIN [Suspect]
     Indication: HEPATITIS C
     Dosage: 1000 MG, QD, PO
     Route: 048
     Dates: start: 20111107, end: 20120313
  3. EPREX [Concomitant]
  4. DIAZEPAM [Concomitant]
  5. PEGASYS [Suspect]
     Indication: HEPATITIS C
     Dosage: 180 MCG, QW, SC
     Route: 058
     Dates: start: 20111107, end: 20120313
  6. LASIX [Concomitant]
  7. NADOL [Concomitant]
  8. GLYBURIDE [Concomitant]

REACTIONS (8)
  - LOSS OF CONSCIOUSNESS [None]
  - ANAEMIA [None]
  - ASCITES [None]
  - MULTI-ORGAN FAILURE [None]
  - RENAL FAILURE [None]
  - PLATELET COUNT DECREASED [None]
  - SEPTIC SHOCK [None]
  - KETOACIDOSIS [None]
